FAERS Safety Report 8962748 (Version 4)
Quarter: 2013Q1

REPORT INFORMATION
  Report Type: Spontaneous
  Country: US (occurrence: US)
  Receive Date: 20121213
  Receipt Date: 20130122
  Transmission Date: 20140127
  Serious: No
  Sender: FDA-Public Use
  Company Number: US-PFIZER INC-2012310440

PATIENT
  Age: 75 Year
  Sex: Male

DRUGS (8)
  1. LYRICA [Suspect]
     Indication: ARTHRALGIA
     Dosage: 50 MG, 2X/DAY (50MG IN AM AND 50MG IN PM)
     Dates: start: 2012
  2. LYRICA [Interacting]
     Dosage: 100 MG, 2X/DAY, IN AM AND PM
  3. LYRICA [Interacting]
     Dosage: 100MG IN AM AND 150MG IN PM
  4. LYRICA [Interacting]
     Dosage: 50 MG, 1X/DAY
  5. LYRICA [Interacting]
     Dosage: 100 MG, 1X/DAY
  6. LYRICA [Interacting]
     Dosage: 150 MG, 1X/DAY
  7. NORCO [Interacting]
     Dosage: UNK
  8. TRANXENE [Concomitant]
     Dosage: UNK

REACTIONS (5)
  - Drug interaction [Unknown]
  - Drug ineffective [Unknown]
  - Hunger [Unknown]
  - Off label use [Unknown]
  - Increased appetite [Unknown]
